FAERS Safety Report 4883139-6 (Version None)
Quarter: 2006Q1

REPORT INFORMATION
  Report Type: 
  Country: None (occurrence: None)
  Receive Date: 20060117
  Receipt Date: 20060117
  Transmission Date: 20060701
  Serious: No
  Sender: FDA-Public Use
  Company Number: None

PATIENT
  Sex: Male
  Weight: 68.18 kg

DRUGS (5)
  1. CLOZAPINE [Suspect]
     Indication: SCHIZOAFFECTIVE DISORDER
     Dosage: 100 MG   BID   PO
     Route: 048
     Dates: start: 20051125, end: 20051222
  2. BENZTROPINE MESYLATE [Concomitant]
  3. DIVALPROEX SODIUM [Concomitant]
  4. DOCUSATE [Concomitant]
  5. MILK OF MAGNESIA TAB [Concomitant]

REACTIONS (2)
  - NEUTROPHIL COUNT DECREASED [None]
  - WHITE BLOOD CELL COUNT DECREASED [None]
